FAERS Safety Report 11425824 (Version 3)
Quarter: 2015Q3

REPORT INFORMATION
  Report Type: Report from Study
  Country: TR (occurrence: TR)
  Receive Date: 20150827
  Receipt Date: 20150917
  Transmission Date: 20151125
  Serious: Yes (Life-Threatening, Hospitalization)
  Sender: FDA-Public Use
  Company Number: TR-B.I. PHARMACEUTICALS,INC./RIDGEFIELD-2015-BI-40372TK

PATIENT
  Age: 66 Year
  Sex: Female
  Weight: 78 kg

DRUGS (2)
  1. BIBF 1120 [Suspect]
     Active Substance: NINTEDANIB
     Indication: LUNG ADENOCARCINOMA METASTATIC
     Dosage: 1 ANZ
     Route: 048
     Dates: start: 20150630
  2. DOCETAXEL. [Suspect]
     Active Substance: DOCETAXEL
     Indication: LUNG ADENOCARCINOMA METASTATIC
     Dosage: DOSE PER APLLICATION: 75 MG/M2, DAILY DOSE: EVERY 21 DAYS 130MG
     Route: 042
     Dates: start: 20150620, end: 20150819

REACTIONS (5)
  - Deep vein thrombosis [Not Recovered/Not Resolved]
  - Neutropenia [Recovered/Resolved]
  - Pulmonary embolism [Not Recovered/Not Resolved]
  - Febrile neutropenia [Recovered/Resolved]
  - Mucosal inflammation [Recovered/Resolved]

NARRATIVE: CASE EVENT DATE: 20150706
